FAERS Safety Report 12865031 (Version 4)
Quarter: 2018Q1

REPORT INFORMATION
  Report Type: Report from Study
  Country: JP (occurrence: JP)
  Receive Date: 20161020
  Receipt Date: 20180226
  Transmission Date: 20180508
  Serious: Yes (Death, Life-Threatening, Hospitalization, Other)
  Sender: FDA-Public Use
  Company Number: JP-BRISTOL-MYERS SQUIBB COMPANY-BMS-2016-023215

PATIENT
  Age: 55 Year
  Sex: Male

DRUGS (2)
  1. NIVOLUMAB [Suspect]
     Active Substance: NIVOLUMAB
     Indication: PRODUCT USED FOR UNKNOWN INDICATION
     Dosage: UNK MG/KG, UNK
     Route: 041
     Dates: start: 20160322, end: 2016
  2. NIVOLUMAB [Suspect]
     Active Substance: NIVOLUMAB
     Indication: NON-SMALL CELL LUNG CANCER
     Dosage: 3 MG/KG, UNK
     Route: 041
     Dates: start: 20160308, end: 20160308

REACTIONS (5)
  - Intussusception [Recovered/Resolved]
  - Anaemia [Recovered/Resolved]
  - Wrong technique in product usage process [Unknown]
  - Malignant neoplasm progression [Fatal]
  - Transfusion [Not Recovered/Not Resolved]

NARRATIVE: CASE EVENT DATE: 20160308
